FAERS Safety Report 7337255-X (Version None)
Quarter: 2011Q1

REPORT INFORMATION
  Report Type: 
  Country: None (occurrence: None)
  Receive Date: 20110308
  Receipt Date: 20110222
  Transmission Date: 20110831
  Serious: Yes (Hospitalization)
  Sender: FDA-Public Use
  Company Number: US-CELGENEUS-163-21880-11022722

PATIENT
  Sex: Female
  Weight: 73 kg

DRUGS (4)
  1. DOXIL [Concomitant]
     Dosage: 7.2 MILLIGRAM
     Route: 065
     Dates: end: 20110203
  2. VELCADE [Concomitant]
     Dosage: 1.82 MILLIGRAM
     Route: 065
     Dates: end: 20110203
  3. REVLIMID [Suspect]
     Indication: MULTIPLE MYELOMA
     Dosage: 10 MILLIGRAM
     Route: 048
     Dates: end: 20110206
  4. DECADRON [Concomitant]
     Dosage: 40 MILLIGRAM
     Route: 065
     Dates: end: 20110203

REACTIONS (2)
  - SYNCOPE [None]
  - CONVULSION [None]
